FAERS Safety Report 4879175-6 (Version None)
Quarter: 2006Q1

REPORT INFORMATION
  Report Type: 
  Country: None (occurrence: None)
  Receive Date: 20060112
  Receipt Date: 20051213
  Transmission Date: 20060701
  Serious: Yes (Death)
  Sender: FDA-Public Use
  Company Number: SE-ROCHE-428322

PATIENT
  Age: 22 Year
  Sex: Male

DRUGS (2)
  1. ROACCUTAN [Suspect]
     Indication: ACNE
     Route: 065
  2. ROACCUTAN [Suspect]
     Route: 065
     Dates: start: 20011215

REACTIONS (10)
  - ARTHRALGIA [None]
  - ASTHENIA [None]
  - BRAIN DAMAGE [None]
  - COMPLETED SUICIDE [None]
  - DEPRESSION [None]
  - MYALGIA [None]
  - PANIC ATTACK [None]
  - PERSONALITY CHANGE [None]
  - PSYCHIATRIC SYMPTOM [None]
  - SELF-INJURIOUS IDEATION [None]
